FAERS Safety Report 18742229 (Version 2)
Quarter: 2021Q4

REPORT INFORMATION
  Report Type: Report from Study
  Country: JP (occurrence: JP)
  Receive Date: 20210114
  Receipt Date: 20211123
  Transmission Date: 20220303
  Serious: Yes (Other)
  Sender: FDA-Public Use
  Company Number: JP-JNJFOC-A-CH2018-180202

PATIENT
  Age: 36 Year
  Sex: Female
  Weight: 60.8 kg

DRUGS (18)
  1. OPSUMIT [Suspect]
     Active Substance: MACITENTAN
     Indication: Pulmonary arterial hypertension
     Dosage: 10 MG, QD
     Route: 048
     Dates: start: 20160331
  2. UPTRAVI [Suspect]
     Active Substance: SELEXIPAG
     Indication: Pulmonary arterial hypertension
     Dosage: 0.4 MG, BID
     Route: 048
     Dates: start: 20180303, end: 20180307
  3. UPTRAVI [Suspect]
     Active Substance: SELEXIPAG
     Dosage: 0.4 MG, BID
     Route: 048
     Dates: start: 20180308, end: 20180312
  4. TREPROSTINIL [Suspect]
     Active Substance: TREPROSTINIL
     Indication: Pulmonary arterial hypertension
     Dates: end: 20180311
  5. SLOW-K [Concomitant]
     Active Substance: POTASSIUM CHLORIDE
  6. CORTRIL [Concomitant]
     Active Substance: HYDROCORTISONE
  7. RABEPRAZOLE SODIUM [Concomitant]
     Active Substance: RABEPRAZOLE SODIUM
  8. SODIUM FERROUS CITRATE [Concomitant]
     Active Substance: SODIUM FERROUS CITRATE
  9. AZOSEMIDE [Concomitant]
     Active Substance: AZOSEMIDE
     Indication: Cardiac failure
  10. SPIRONOLACTONE [Concomitant]
     Active Substance: SPIRONOLACTONE
     Indication: Cardiac failure
  11. ADEMPAS [Concomitant]
     Active Substance: RIOCIGUAT
     Indication: Pulmonary arterial hypertension
  12. METOCLOPRAMIDE [Concomitant]
     Active Substance: METOCLOPRAMIDE
  13. DIETARY SUPPLEMENT\PROBIOTICS [Concomitant]
     Active Substance: DIETARY SUPPLEMENT\PROBIOTICS
  14. POTASSIUM ASPARTATE [Concomitant]
     Active Substance: POTASSIUM ASPARTATE
  15. BERAPROST SODIUM [Concomitant]
     Active Substance: BERAPROST SODIUM
  16. NEXIUM [Concomitant]
     Active Substance: ESOMEPRAZOLE MAGNESIUM
  17. CARBOCYSTEINE [Concomitant]
     Active Substance: CARBOCYSTEINE
     Indication: Asthma
  18. LANSOPRAZOLE [Concomitant]
     Active Substance: LANSOPRAZOLE

REACTIONS (3)
  - Aspartate aminotransferase increased [Recovering/Resolving]
  - Alanine aminotransferase increased [Recovering/Resolving]
  - Catheter site pain [Recovered/Resolved]

NARRATIVE: CASE EVENT DATE: 20180306
